FAERS Safety Report 8221511 (Version 2)
Quarter: 2013Q1

REPORT INFORMATION
  Report Type: Spontaneous
  Country: US (occurrence: US)
  Receive Date: 20111102
  Receipt Date: 20130318
  Transmission Date: 20140127
  Serious: Yes (Hospitalization)
  Sender: FDA-Public Use
  Company Number: US-ELI_LILLY_AND_COMPANY-US201110000645

PATIENT
  Sex: Female

DRUGS (10)
  1. FORTEO [Suspect]
     Indication: OSTEOPOROSIS
     Dosage: UNK, UNKNOWN
     Dates: start: 20110825
  2. PREVACID [Concomitant]
     Indication: REFLUX GASTRITIS
     Dosage: 30 MG, QD
  3. SYNTHROID [Concomitant]
     Dosage: 100 UG, QD
  4. TUMS EXTRA STRENGTH [Concomitant]
  5. GLUCOSAMINE [Concomitant]
  6. VITAMIN B6 [Concomitant]
     Dosage: 50 MG, QD
  7. FLINTSTONES [Concomitant]
     Dosage: UNK
     Dates: end: 201110
  8. ACTONEL [Concomitant]
  9. PHENERGAN [Concomitant]
  10. VITAMIN D NOS [Concomitant]

REACTIONS (8)
  - Nephrolithiasis [Unknown]
  - Abdominal pain [Unknown]
  - Incorrect storage of drug [Unknown]
  - Toothache [Unknown]
  - Diarrhoea [Unknown]
  - Back pain [Unknown]
  - Dysstasia [Unknown]
  - Drug dose omission [Unknown]
